FAERS Safety Report 14147320 (Version 1)
Quarter: 2017Q4

REPORT INFORMATION
  Report Type: Spontaneous
  Country: US (occurrence: US)
  Receive Date: 20171101
  Receipt Date: 20171101
  Transmission Date: 20180321
  Serious: No
  Sender: FDA-Public Use
  Company Number: US-SHIRE-US201720012

PATIENT
  Sex: Female

DRUGS (1)
  1. XIIDRA [Suspect]
     Active Substance: LIFITEGRAST
     Indication: PRODUCT USED FOR UNKNOWN INDICATION
     Dosage: ONE GTT OU, 2X/DAY:BID
     Route: 047

REACTIONS (4)
  - Inappropriate schedule of drug administration [Not Recovered/Not Resolved]
  - Vision blurred [Not Recovered/Not Resolved]
  - Incorrect dose administered [Not Recovered/Not Resolved]
  - Instillation site reaction [Not Recovered/Not Resolved]

NARRATIVE: CASE EVENT DATE: 20170721
